APPROVED DRUG PRODUCT: ISOSORBIDE MONONITRATE
Active Ingredient: ISOSORBIDE MONONITRATE
Strength: 120MG
Dosage Form/Route: TABLET, EXTENDED RELEASE;ORAL
Application: A075448 | Product #003
Applicant: IVAX PHARMACEUTICALS INC SUB TEVA PHARMACEUTICALS USA
Approved: Aug 7, 2001 | RLD: No | RS: No | Type: DISCN